FAERS Safety Report 4560772-2 (Version None)
Quarter: 2005Q1

REPORT INFORMATION
  Report Type: 
  Country: None (occurrence: None)
  Receive Date: 20050124
  Receipt Date: 20050110
  Transmission Date: 20050727
  Serious: Yes (Hospitalization)
  Sender: FDA-Public Use
  Company Number: FRWYE325810JAN05

PATIENT
  Age: 43 Year
  Sex: Female

DRUGS (1)
  1. ETHINYL ESTRADIOL AND LEVONORGESTREL [Suspect]
     Dosage: 1 TABLET 1X PER 1 DAY ORAL
     Route: 048
     Dates: end: 20040811

REACTIONS (2)
  - HIGH DENSITY LIPOPROTEIN INCREASED [None]
  - ISCHAEMIC CEREBRAL INFARCTION [None]
